FAERS Safety Report 6058064-8 (Version None)
Quarter: 2009Q1

REPORT INFORMATION
  Report Type: 
  Country: None (occurrence: None)
  Receive Date: 20090127
  Receipt Date: 20090112
  Transmission Date: 20090719
  Serious: Yes (Hospitalization)
  Sender: FDA-Public Use
  Company Number: 230377K09USA

PATIENT
  Age: 47 Year
  Sex: Female
  Weight: 113 kg

DRUGS (5)
  1. REBIF [Suspect]
     Indication: MULTIPLE SCLEROSIS
     Dosage: 44 MCG, 3 IN 1 WEEKS, SUBCUTANEOUS
     Route: 058
     Dates: start: 20071119
  2. BACLOFEN [Concomitant]
  3. VICODIN [Concomitant]
  4. KLOR-CON [Concomitant]
  5. LORATADINE [Concomitant]

REACTIONS (1)
  - MUSCULOSKELETAL STIFFNESS [None]
